FAERS Safety Report 11326069 (Version 1)
Quarter: 2015Q3

REPORT INFORMATION
  Report Type: Report from Study
  Country: US (occurrence: None)
  Receive Date: 20150729
  Receipt Date: 20150729
  Transmission Date: 20151125
  Serious: Yes (Hospitalization)
  Sender: FDA-Public Use
  Company Number: US-002262

PATIENT
  Sex: Male

DRUGS (2)
  1. SOLUTION FOR PARENTERAL NUTRITION [Concomitant]
     Active Substance: AMINO ACIDS\DEXTROSE\ELECTROLYTES NOS
  2. GATTEX [Suspect]
     Active Substance: TEDUGLUTIDE\WATER
     Indication: SHORT-BOWEL SYNDROME
     Dosage: DF
     Route: 058
     Dates: start: 20150316, end: 20150706

REACTIONS (4)
  - Cardiac failure congestive [None]
  - Cholecystitis [None]
  - Diabetic ketoacidosis [None]
  - Liver disorder [None]

NARRATIVE: CASE EVENT DATE: 2015
